FAERS Safety Report 8020162-7 (Version None)
Quarter: 2012Q1

REPORT INFORMATION
  Report Type: 
  Country: None (occurrence: None)
  Receive Date: 20120103
  Receipt Date: 20111222
  Transmission Date: 20120608
  Serious: Yes (Death, Hospitalization, Other)
  Sender: FDA-Public Use
  Company Number: JP-B.I. PHARMACEUTICALS,INC./RIDGEFIELD-2011-BP-26447NB

PATIENT
  Sex: Female
  Weight: 43 kg

DRUGS (10)
  1. LANSOPRAZOLE [Concomitant]
     Dosage: 15 MG
     Route: 065
     Dates: end: 20111011
  2. JUVELA N [Concomitant]
     Dosage: 600 MG
     Route: 065
     Dates: end: 20111011
  3. ASPIRIN [Concomitant]
     Dosage: 100 MG
     Route: 065
     Dates: end: 20110831
  4. PRADAXA [Suspect]
     Indication: ATRIAL FIBRILLATION
     Dosage: 150 MG
     Route: 048
     Dates: start: 20110720, end: 20111011
  5. OLMESARTAN MEDOXOMIL [Concomitant]
     Dosage: 5 MG
     Route: 065
     Dates: end: 20111011
  6. MAGMITT [Concomitant]
     Dosage: 660 MG
     Route: 065
     Dates: end: 20111011
  7. CANDESARTAN CILEXETIL [Concomitant]
     Route: 065
  8. ALINAMIN-F [Concomitant]
     Dosage: 75 MG
     Route: 065
     Dates: end: 20111011
  9. NIKORANMART [Concomitant]
     Dosage: 10 MG
     Route: 065
     Dates: end: 20111011
  10. AMLODIPINE [Concomitant]
     Dosage: 2.5 MG
     Route: 065
     Dates: end: 20111011

REACTIONS (5)
  - CHEST DISCOMFORT [None]
  - URINARY TRACT INFECTION [None]
  - HAEMORRHAGE SUBCUTANEOUS [None]
  - PUTAMEN HAEMORRHAGE [None]
  - CARDIAC FAILURE CONGESTIVE [None]
